FAERS Safety Report 10593786 (Version 1)
Quarter: 2014Q4

REPORT INFORMATION
  Report Type: Spontaneous
  Country: US (occurrence: US)
  Receive Date: 20141119
  Receipt Date: 20141119
  Transmission Date: 20150529
  Serious: No
  Sender: FDA-Public Use
  Company Number: US-ELI_LILLY_AND_COMPANY-US201411004887

PATIENT
  Age: 57 Year
  Sex: Female

DRUGS (15)
  1. ONDANSETRON [Concomitant]
     Active Substance: ONDANSETRON
  2. RENVELA [Concomitant]
     Active Substance: SEVELAMER CARBONATE
  3. TEMAZEPAM. [Concomitant]
     Active Substance: TEMAZEPAM
  4. LETAIRIS [Suspect]
     Active Substance: AMBRISENTAN
     Indication: PULMONARY HYPERTENSION
     Dosage: 5 MG, QD
     Route: 065
     Dates: start: 20140807
  5. SENSIPAR [Concomitant]
     Active Substance: CINACALCET HYDROCHLORIDE
  6. NEOSPORIN                          /00038301/ [Concomitant]
  7. MOMETASONE FUROATE. [Concomitant]
     Active Substance: MOMETASONE FUROATE
  8. VITAMIN D3 [Concomitant]
     Active Substance: CHOLECALCIFEROL
  9. ACYCLOVIR                          /00587301/ [Concomitant]
     Active Substance: ACYCLOVIR
  10. PROCTOZONE HC [Concomitant]
     Active Substance: HYDROCORTISONE
  11. RILPIVIRINE [Concomitant]
     Active Substance: RILPIVIRINE
  12. OMEPRAZOLE. [Concomitant]
     Active Substance: OMEPRAZOLE
  13. VIREAD [Concomitant]
     Active Substance: TENOFOVIR DISOPROXIL FUMARATE
  14. ADCIRCA [Suspect]
     Active Substance: TADALAFIL
     Indication: PRODUCT USED FOR UNKNOWN INDICATION
     Route: 065
  15. TRAMADOL [Concomitant]
     Active Substance: TRAMADOL

REACTIONS (6)
  - Vision blurred [Unknown]
  - Epistaxis [Unknown]
  - Fall [Unknown]
  - Headache [Unknown]
  - Dizziness [Unknown]
  - Mouth haemorrhage [Unknown]

NARRATIVE: CASE EVENT DATE: 20140918
